FAERS Safety Report 11543641 (Version 1)
Quarter: 2015Q3

REPORT INFORMATION
  Report Type: Report from Study
  Country: GB (occurrence: GB)
  Receive Date: 20150923
  Receipt Date: 20150923
  Transmission Date: 20151125
  Serious: Yes (Hospitalization)
  Sender: FDA-Public Use
  Company Number: GB-ABBVIE-15K-167-1466004-00

PATIENT
  Age: 83 Year
  Sex: Male

DRUGS (2)
  1. METHOTREXATE [Concomitant]
     Active Substance: METHOTREXATE
     Indication: RHEUMATOID ARTHRITIS
  2. HUMIRA [Suspect]
     Active Substance: ADALIMUMAB
     Indication: RHEUMATOID ARTHRITIS
     Route: 058
     Dates: start: 20050222

REACTIONS (3)
  - Urinary retention [Unknown]
  - Urinary tract infection [Unknown]
  - Bladder outlet obstruction [Unknown]

NARRATIVE: CASE EVENT DATE: 20150127
